FAERS Safety Report 8536866-3 (Version None)
Quarter: 2012Q3

REPORT INFORMATION
  Report Type: 
  Country: None (occurrence: None)
  Receive Date: 20120725
  Receipt Date: 20120713
  Transmission Date: 20120928
  Serious: Yes (Hospitalization)
  Sender: FDA-Public Use
  Company Number: JP-ROCHE-1061844

PATIENT
  Sex: Female

DRUGS (32)
  1. ACTEMRA [Suspect]
     Route: 041
     Dates: start: 20110409, end: 20110603
  2. ACTEMRA [Suspect]
     Route: 041
     Dates: start: 20110702, end: 20110702
  3. ACTEMRA [Suspect]
     Route: 041
     Dates: start: 20110827, end: 20111214
  4. PREDNISOLONE [Suspect]
     Indication: JUVENILE ARTHRITIS
     Route: 048
     Dates: start: 20110323, end: 20110423
  5. PREDNISOLONE [Suspect]
     Route: 048
     Dates: start: 20110603, end: 20110616
  6. SELBEX [Concomitant]
     Indication: PROPHYLAXIS
     Route: 048
  7. PREDNISOLONE [Suspect]
     Route: 048
     Dates: start: 20110702, end: 20110918
  8. PREDNISOLONE [Suspect]
     Route: 048
     Dates: start: 20110919, end: 20111003
  9. PREDNISOLONE [Suspect]
     Route: 048
     Dates: start: 20111018, end: 20111101
  10. PREDNISOLONE [Suspect]
     Route: 048
     Dates: start: 20120114, end: 20120208
  11. IBRUPROFEN [Concomitant]
     Indication: JUVENILE ARTHRITIS
     Route: 048
  12. NEORAL [Concomitant]
     Indication: JUVENILE ARTHRITIS
     Route: 048
  13. ACTEMRA [Suspect]
     Route: 041
     Dates: start: 20120215, end: 20120222
  14. PREDNISOLONE [Suspect]
     Route: 048
     Dates: start: 20110424, end: 20110429
  15. PREDNISOLONE [Suspect]
     Route: 048
     Dates: start: 20110513, end: 20110519
  16. PREDNISOLONE [Suspect]
     Route: 048
     Dates: start: 20120214, end: 20120217
  17. PREDNISOLONE [Suspect]
     Route: 048
     Dates: start: 20110506, end: 20110512
  18. PREDNISOLONE [Suspect]
     Route: 048
     Dates: start: 20111004, end: 20111017
  19. PREDNISOLONE [Suspect]
     Route: 048
     Dates: start: 20120331
  20. PREDNISOLONE [Suspect]
     Route: 048
     Dates: start: 20110430, end: 20110505
  21. PREDNISOLONE [Suspect]
     Route: 048
     Dates: start: 20111214, end: 20120113
  22. PREDNISOLONE [Suspect]
     Route: 048
     Dates: start: 20120209, end: 20120213
  23. ACTEMRA [Suspect]
     Route: 041
     Dates: start: 20110715, end: 20110813
  24. ACTEMRA [Suspect]
     Indication: JUVENILE ARTHRITIS
     Route: 041
     Dates: start: 20110402, end: 20110402
  25. ACTEMRA [Suspect]
     Route: 041
     Dates: start: 20110617, end: 20110617
  26. PREDNISOLONE SODIUM SUCCINATE INJ [Suspect]
     Indication: JUVENILE ARTHRITIS
     Route: 042
     Dates: start: 20120218, end: 20120330
  27. PREDNISOLONE [Suspect]
     Route: 048
     Dates: start: 20110617, end: 20110701
  28. ONEALFA [Concomitant]
     Indication: PROPHYLAXIS
     Route: 048
  29. ACTEMRA [Suspect]
     Route: 041
     Dates: start: 20111228, end: 20120208
  30. ACTEMRA [Suspect]
     Route: 041
     Dates: start: 20120313
  31. PREDNISOLONE [Suspect]
     Route: 048
     Dates: start: 20110520, end: 20110602
  32. PREDNISOLONE [Suspect]
     Route: 048
     Dates: start: 20111102, end: 20111213

REACTIONS (4)
  - JUVENILE ARTHRITIS [None]
  - COMPRESSION FRACTURE [None]
  - UPPER RESPIRATORY TRACT INFLAMMATION [None]
  - ABSCESS STERILE [None]
